FAERS Safety Report 12650506 (Version 1)
Quarter: 2016Q3

REPORT INFORMATION
  Report Type: Spontaneous
  Country: US (occurrence: US)
  Receive Date: 20160815
  Receipt Date: 20160815
  Transmission Date: 20161109
  Serious: No
  Sender: FDA-Public Use
  Company Number: US-ASTRAZENECA-2016SE86920

PATIENT
  Sex: Female

DRUGS (1)
  1. NEXIUM 24HR [Suspect]
     Active Substance: ESOMEPRAZOLE MAGNESIUM
     Dosage: 44.6 MG, 2X/DAY(22.3 MG, TWO IN THE MORNING AND TWO IN THE AFTERNOON)
     Route: 048

REACTIONS (2)
  - Muscle twitching [Unknown]
  - Off label use [Unknown]
